FAERS Safety Report 19984699 (Version 1)
Quarter: 2021Q4

REPORT INFORMATION
  Report Type: Spontaneous
  Country: US (occurrence: US)
  Receive Date: 20211017
  Receipt Date: 20211017
  Transmission Date: 20220303
  Serious: Yes (Other)
  Sender: FDA-Public Use
  Company Number: None

PATIENT
  Age: 56 Year
  Sex: Female
  Weight: 79.2 kg

DRUGS (9)
  1. REGEN-COV [Suspect]
     Active Substance: CASIRIVIMAB\IMDEVIMAB
     Indication: COVID-19
  2. HYDROCHLOROTHIAZIDE\TELMISARTAN [Concomitant]
     Active Substance: HYDROCHLOROTHIAZIDE\TELMISARTAN
  3. ASPIRIN [Concomitant]
     Active Substance: ASPIRIN
  4. PROGESTERONE [Concomitant]
     Active Substance: PROGESTERONE
  5. EST ESTROGEN-MTESET HS [Concomitant]
  6. CHOLECALCIFEROL [Concomitant]
     Active Substance: CHOLECALCIFEROL
  7. HERBALS\TURMERIC [Concomitant]
     Active Substance: HERBALS\TURMERIC
  8. VITAMIN E [Concomitant]
     Active Substance: .ALPHA.-TOCOPHEROL
  9. VITAMINS [Concomitant]
     Active Substance: VITAMINS

REACTIONS (9)
  - Nausea [None]
  - Vomiting [None]
  - Chills [None]
  - Loss of consciousness [None]
  - Head injury [None]
  - Anal incontinence [None]
  - Urinary incontinence [None]
  - Weight decreased [None]
  - Decreased appetite [None]

NARRATIVE: CASE EVENT DATE: 20210923
